FAERS Safety Report 9616955 (Version 2)
Quarter: 2013Q4

REPORT INFORMATION
  Report Type: Report from Study
  Country: BE (occurrence: BE)
  Receive Date: 20131011
  Receipt Date: 20131104
  Transmission Date: 20140711
  Serious: Yes (Hospitalization)
  Sender: FDA-Public Use
  Company Number: BE-PFIZER INC-2013290495

PATIENT
  Age: 67 Year
  Sex: Female

DRUGS (44)
  1. FLUOROURACIL [Suspect]
     Indication: METASTATIC GASTRIC CANCER
     Dosage: 5811 MG, CYCLIC 1, 1 IN 21 D
     Route: 041
     Dates: start: 20120305, end: 20120310
  2. FLUOROURACIL [Suspect]
     Dosage: 4272 MG, CYCLIC 2, 1 IN 21 D
     Route: 041
     Dates: start: 20120326, end: 20120331
  3. FLUOROURACIL [Suspect]
     Dosage: 2883.5 MG, 1 IN 21 D, CURRENT CYCLE 4 STARTED ON 31MAY2012
     Route: 041
     Dates: start: 20120509, end: 20120605
  4. CISPLATIN [Suspect]
     Indication: METASTATIC GASTRIC CANCER
     Dosage: 116 MG, CYCLIC 1, 1 IN 21 D
     Route: 041
     Dates: start: 20120305, end: 20120305
  5. CISPLATIN [Suspect]
     Dosage: 85 MG, CYCLIC 2, 1 IN 21 D
     Route: 041
     Dates: start: 20120326, end: 20120326
  6. CISPLATIN [Suspect]
     Dosage: 59 MG, CURRENT CYCLE 4 STARTED ON 31MAY2012 (59 MG,1 IN 21 D)
     Route: 041
     Dates: start: 20120509, end: 20120531
  7. CISPLATIN [Suspect]
     Dosage: UNK
     Dates: end: 20120531
  8. ATACAND [Concomitant]
     Indication: HYPERTENSION
     Dosage: UNK
     Dates: start: 20050525
  9. ATACAND [Concomitant]
     Dosage: UNK
     Dates: start: 20120411
  10. ORTHO-GYNEST [Concomitant]
     Indication: OOPHORECTOMY
     Dosage: UNK
     Dates: start: 20110307
  11. OLAMINE [Concomitant]
     Indication: PROPHYLAXIS
     Dosage: UNK
     Dates: start: 20101208
  12. NEUROBION [Concomitant]
     Indication: GASTRECTOMY
     Dosage: UNK
     Dates: start: 20100330
  13. BAREXAL [Concomitant]
     Indication: DIARRHOEA
     Dosage: AS REQUIRED
     Dates: start: 20120305
  14. SODIUM BICARBONATE [Concomitant]
     Indication: STOMATITIS
     Dosage: AS REQUIRED
     Route: 002
     Dates: start: 20120313
  15. SODIUM BICARBONATE [Concomitant]
     Indication: STOMATITIS
  16. DAFALGAN [Concomitant]
     Indication: HEADACHE
     Dosage: AS REQUIRED
     Dates: start: 20120309
  17. DAFALGAN [Concomitant]
     Indication: PAIN
     Dosage: AS REQUIRED
     Dates: start: 20120328
  18. DAFALGAN [Concomitant]
     Dosage: AS REQUIRED
     Dates: start: 20120411
  19. IMODIUM [Concomitant]
     Indication: DIARRHOEA
     Dosage: AS REQUIRED
     Dates: start: 20120312
  20. MOTILIUM [Concomitant]
     Indication: NAUSEA
     Dosage: AS REQUIRED
     Dates: start: 20120311
  21. MOVICOL [Concomitant]
     Indication: CONSTIPATION
     Dosage: AS REQUIRED
     Dates: start: 20120313
  22. LITICAN [Concomitant]
     Indication: NAUSEA
     Dosage: AS REQUIRED
     Dates: start: 20120311
  23. MS CONTIN [Concomitant]
     Indication: ODYNOPHAGIA
     Dosage: AS REQUIRED
     Dates: start: 20120316
  24. MS DIRECT [Concomitant]
     Indication: ODYNOPHAGIA
     Dosage: AS REQUIRED
     Dates: start: 20120315
  25. PRIMPERAN [Concomitant]
     Indication: NAUSEA
     Dosage: UNK
     Dates: start: 20120403
  26. PRIMPERAN [Concomitant]
     Dosage: UNK
     Dates: start: 20120316
  27. PRESERVISION SOFTGELS WITH LUTEIN [Concomitant]
     Indication: PROPHYLAXIS
     Dosage: UNK
     Dates: start: 20101001
  28. SOFTENE [Concomitant]
     Indication: CONSTIPATION
     Dosage: AS REQUIRED
     Dates: start: 20120315
  29. ZINNAT [Concomitant]
     Indication: BRONCHITIS
     Dosage: UNK
     Dates: start: 20120531, end: 20120603
  30. ERYTHROPOIETIN [Concomitant]
     Indication: ANAEMIA PROPHYLAXIS
     Dosage: UNK
     Dates: start: 20120620, end: 20120620
  31. ENTEROL [Concomitant]
     Indication: DIARRHOEA
     Dosage: UNK
  32. EMEND [Concomitant]
     Indication: PROPHYLAXIS OF NAUSEA AND VOMITING
     Dosage: UNK
     Dates: start: 20120305, end: 20120602
  33. MEDROL [Concomitant]
     Indication: PROPHYLAXIS
     Dosage: UNK
     Dates: start: 20120305
  34. ISOSOURCE ENERGY [Concomitant]
     Indication: DECREASED APPETITE
     Dosage: UNK
     Dates: start: 20120327, end: 20120607
  35. PANTOMED [Concomitant]
     Indication: DYSPEPSIA
     Dosage: AS REQUIRED
     Dates: start: 20120406
  36. PANTOMED [Concomitant]
     Indication: NAUSEA
  37. POTASSIUM CHLORIDE [Concomitant]
     Indication: PROPHYLAXIS
     Dosage: UNK
     Dates: start: 20120411, end: 20120601
  38. FRAXIPARIN [Concomitant]
     Indication: THROMBOSIS PROPHYLAXIS
     Dosage: UNK
     Dates: start: 20120531, end: 20120601
  39. ZANTAC [Concomitant]
     Indication: DYSPEPSIA
     Dosage: UNK
     Dates: start: 20120601, end: 20120601
  40. ARANESP [Concomitant]
     Indication: ANAEMIA
     Dosage: UNK
     Dates: start: 20120604, end: 20120604
  41. SACCHAROMYCES BOULARDII [Concomitant]
  42. PANTOPRAZOLE SODIUM [Concomitant]
  43. NADROPARIN CALCIUM [Concomitant]
  44. EPOGEN [Concomitant]

REACTIONS (3)
  - Aplastic anaemia [Unknown]
  - Bronchitis [Unknown]
  - Pyrexia [Recovered/Resolved]
